FAERS Safety Report 18028055 (Version 1)
Quarter: 2020Q3

REPORT INFORMATION
  Report Type: Spontaneous
  Country: US (occurrence: US)
  Receive Date: 20200715
  Receipt Date: 20200715
  Transmission Date: 20201103
  Serious: No
  Sender: FDA-Public Use
  Company Number: US-TEVA-2020-US-1800916

PATIENT
  Age: 65 Year
  Sex: Female

DRUGS (2)
  1. TRAZODONE HYDROCHLORIDE. [Suspect]
     Active Substance: TRAZODONE HYDROCHLORIDE
     Indication: INSOMNIA
     Dosage: NEW ONES 3 OR 4 NIGHTS BEFORE.
     Route: 065
  2. TRAZODONE HYDROCHLORIDE. [Suspect]
     Active Substance: TRAZODONE HYDROCHLORIDE
     Indication: DEPRESSION

REACTIONS (3)
  - Insomnia [Unknown]
  - Drug ineffective [Unknown]
  - Middle insomnia [Unknown]

NARRATIVE: CASE EVENT DATE: 202007
